FAERS Safety Report 9100215 (Version 1)
Quarter: 2013Q1

REPORT INFORMATION
  Report Type: Spontaneous
  Country: US (occurrence: US)
  Receive Date: 20130214
  Receipt Date: 20130214
  Transmission Date: 20140127
  Serious: No
  Sender: FDA-Public Use
  Company Number: US-ASTRAZENECA-2013SE07692

PATIENT
  Age: 79 Year
  Sex: Female

DRUGS (6)
  1. CRESTOR [Suspect]
     Indication: BLOOD CHOLESTEROL INCREASED
     Route: 048
  2. NEXIUM [Suspect]
     Indication: GASTROOESOPHAGEAL REFLUX DISEASE
     Route: 048
  3. NEXIUM [Suspect]
     Indication: OESOPHAGEAL DYSPLASIA
     Route: 048
  4. NEXIUM [Suspect]
     Indication: GASTROOESOPHAGEAL REFLUX DISEASE
     Dosage: TOOK TWO TIMES A DAY
     Route: 048
  5. NEXIUM [Suspect]
     Indication: OESOPHAGEAL DYSPLASIA
     Dosage: TOOK TWO TIMES A DAY
     Route: 048
  6. ZOCOR [Concomitant]

REACTIONS (6)
  - Dyspepsia [Unknown]
  - Tremor [Unknown]
  - Adverse event [Unknown]
  - Blood cholesterol increased [Unknown]
  - Drug dose omission [Unknown]
  - Intentional drug misuse [Unknown]
